FAERS Safety Report 4951726-2 (Version None)
Quarter: 2006Q1

REPORT INFORMATION
  Report Type: 
  Country: None (occurrence: None)
  Receive Date: 20060323
  Receipt Date: 20060321
  Transmission Date: 20060701
  Serious: Yes (Hospitalization, Disabling, Other)
  Sender: FDA-Public Use
  Company Number: US-GLAXOSMITHKLINE-A0598415A

PATIENT
  Age: 51 Year
  Sex: Female

DRUGS (2)
  1. ZOFRAN [Suspect]
     Indication: DRUG USE FOR UNKNOWN INDICATION
     Dosage: 4MG THREE TIMES PER DAY
     Route: 048
     Dates: end: 20060309
  2. NO CONCURRENT MEDICATION [Concomitant]

REACTIONS (2)
  - DEHYDRATION [None]
  - VOMITING [None]
